FAERS Safety Report 10457451 (Version 2)
Quarter: 2014Q4

REPORT INFORMATION
  Report Type: Spontaneous
  Country: DE (occurrence: DE)
  Receive Date: 20140916
  Receipt Date: 20141003
  Transmission Date: 20150528
  Serious: Yes (Hospitalization)
  Sender: FDA-Public Use
  Company Number: DE-MYLAN-2014M1003700

PATIENT

DRUGS (3)
  1. ELONTRIL [Suspect]
     Active Substance: BUPROPION HYDROCHLORIDE
     Indication: PRODUCT USED FOR UNKNOWN INDICATION
     Dosage: 300 MG, 10 TABLETS AT ONCE
     Route: 048
     Dates: start: 20140903, end: 20140903
  2. CITALOPRAM DURA 20MG [Suspect]
     Active Substance: CITALOPRAM HYDROBROMIDE
     Indication: PRODUCT USED FOR UNKNOWN INDICATION
     Dosage: 20 MG, 18 TABLETS ONCE
     Route: 048
     Dates: start: 20140903, end: 20140903
  3. ALCOHOL. [Suspect]
     Active Substance: ALCOHOL
     Indication: PRODUCT USED FOR UNKNOWN INDICATION
     Dosage: INTAKE ONCE
     Route: 048
     Dates: start: 20140903, end: 20140903

REACTIONS (4)
  - Suicide attempt [Unknown]
  - Aphasia [Unknown]
  - Liver function test abnormal [Unknown]
  - Somnolence [Unknown]

NARRATIVE: CASE EVENT DATE: 20140903
